FAERS Safety Report 7774459-6 (Version None)
Quarter: 2011Q3

REPORT INFORMATION
  Report Type: 
  Country: None (occurrence: None)
  Receive Date: 20110923
  Receipt Date: 20110922
  Transmission Date: 20111222
  Serious: Yes (Hospitalization)
  Sender: FDA-Public Use
  Company Number: AU-ROCHE-802698

PATIENT
  Age: 58 Year
  Sex: Male
  Weight: 134 kg

DRUGS (4)
  1. VEMURAFENIB [Suspect]
     Dosage: DATE OF LAST DOSE PRIOR TO SAE WAS:15 SEP 2011
     Route: 048
     Dates: start: 20110804, end: 20110916
  2. NAPROXEN [Concomitant]
     Dates: start: 20000101
  3. NEXIUM [Concomitant]
     Dates: start: 20000101
  4. PERINDOPRIL ERBUMINE [Concomitant]
     Dates: start: 19950101

REACTIONS (2)
  - HEPATIC ENZYME INCREASED [None]
  - HEADACHE [None]
